FAERS Safety Report 20758027 (Version 1)
Quarter: 2022Q2

REPORT INFORMATION
  Report Type: Spontaneous
  Country: US (occurrence: None)
  Receive Date: 20220426
  Receipt Date: 20220426
  Transmission Date: 20220720
  Serious: Yes (Disabling)
  Sender: FDA-Public Use
  Company Number: None

PATIENT
  Age: 79 Year
  Sex: Female
  Weight: 52.2 kg

DRUGS (5)
  1. SPIRIVA [Suspect]
     Active Substance: TIOTROPIUM BROMIDE MONOHYDRATE
     Indication: Chronic obstructive pulmonary disease
     Dosage: OTHER QUANTITY : 1 INHALATION(S);?FREQUENCY : DAILY;?
     Route: 055
     Dates: start: 20220202
  2. LOSARTAN [Concomitant]
     Active Substance: LOSARTAN
  3. SERTRALINE [Concomitant]
     Active Substance: SERTRALINE HYDROCHLORIDE
  4. DILTIAZEM [Concomitant]
     Active Substance: DILTIAZEM
  5. VITAMIN D [Concomitant]
     Active Substance: VITAMIN D NOS

REACTIONS (4)
  - Dry mouth [None]
  - Oropharyngeal discomfort [None]
  - Dysphonia [None]
  - Tongue discolouration [None]

NARRATIVE: CASE EVENT DATE: 20220202
